FAERS Safety Report 19977700 (Version 1)
Quarter: 2021Q4

REPORT INFORMATION
  Report Type: Report from Study
  Country: FR (occurrence: FR)
  Receive Date: 20211020
  Receipt Date: 20211020
  Transmission Date: 20220303
  Serious: Yes (Hospitalization)
  Sender: FDA-Public Use
  Company Number: FR-SERVIER-S21011258

PATIENT

DRUGS (6)
  1. PEGASPARGASE [Suspect]
     Active Substance: PEGASPARGASE
     Indication: Acute lymphocytic leukaemia
     Dosage: 1010 IU, ON D8, D36 AND D64
     Route: 042
     Dates: start: 20210729
  2. TN UNSPECIFIED [Concomitant]
     Indication: Acute lymphocytic leukaemia
     Dosage: 40 MG, D1 TO D21, D29 TO D49 AND D57 TO D77
     Route: 048
     Dates: start: 20210722
  3. TN UNSPECIFIED [Concomitant]
     Indication: Acute lymphocytic leukaemia
     Dosage: 5 MG, ON D1 TO D5, D29 TO D33 AND D57 TO D61
     Route: 048
     Dates: start: 20210722, end: 20210920
  4. TN UNSPECIFIED [Concomitant]
     Indication: Acute lymphocytic leukaemia
     Dosage: 1.2 MG, ON D1, D8, D29, D36, D57 AND D64
     Route: 042
     Dates: start: 20210722, end: 20210923
  5. TN UNSPECIFIED [Concomitant]
     Indication: Acute lymphocytic leukaemia
     Dosage: 12 MG, ON D2, D30 AND D58
     Route: 037
     Dates: start: 20210723, end: 20210917
  6. TN UNSPECIFIED [Concomitant]
     Dosage: 20 MG, D8, D15, D22, D36 AND D43
     Route: 048
     Dates: start: 20210729

REACTIONS (1)
  - Hypoglycaemia [Recovered/Resolved]

NARRATIVE: CASE EVENT DATE: 20211004
